FAERS Safety Report 14303259 (Version 1)
Quarter: 2017Q4

REPORT INFORMATION
  Report Type: Other
  Country: US (occurrence: IL)
  Receive Date: 20171219
  Receipt Date: 20171219
  Transmission Date: 20180321
  Serious: Yes (Other)
  Sender: FDA-Public Use
  Company Number: IL-BRECKENRIDGE PHARMACEUTICAL, INC.-2037418

PATIENT
  Age: 75 Year
  Sex: Female

DRUGS (1)
  1. ZOLEDRONIC ACID [Suspect]
     Active Substance: ZOLEDRONIC ACID
     Indication: OSTEOPOROSIS

REACTIONS (9)
  - Rheumatoid arthritis [Unknown]
  - Peripheral swelling [Unknown]
  - Vomiting [Unknown]
  - Syncope [Unknown]
  - Pyrexia [Unknown]
  - Arthritis [Unknown]
  - Osteoarthritis [Unknown]
  - Pain in extremity [Unknown]
  - Tenderness [Unknown]
